FAERS Safety Report 22238724 (Version 3)
Quarter: 2024Q4

REPORT INFORMATION
  Report Type: Report from Study
  Country: US (occurrence: US)
  Receive Date: 20230421
  Receipt Date: 20241101
  Transmission Date: 20250115
  Serious: Yes (Hospitalization, Other)
  Sender: ITALFARMACO SPA
  Company Number: US-ITALFARMACO SPA-2140642

PATIENT
  Age: 69 Year
  Sex: Male

DRUGS (3)
  1. TIGLUTIK [Suspect]
     Active Substance: RILUZOLE
     Indication: Amyotrophic lateral sclerosis
     Dates: start: 20230208
  2. ABILIFY [Concomitant]
     Active Substance: ARIPIPRAZOLE
  3. ATENOLOL [Concomitant]
     Active Substance: ATENOLOL

REACTIONS (2)
  - Influenza [Unknown]
  - Pneumonia [Unknown]

NARRATIVE: CASE EVENT DATE: 20230411
